FAERS Safety Report 7590328-9 (Version None)
Quarter: 2011Q3

REPORT INFORMATION
  Report Type: 
  Country: None (occurrence: None)
  Receive Date: 20110705
  Receipt Date: 20110627
  Transmission Date: 20111222
  Serious: Yes (Hospitalization, Other)
  Sender: FDA-Public Use
  Company Number: US-BAYER-201033757NA

PATIENT
  Age: 32 Year
  Sex: Female
  Weight: 113 kg

DRUGS (3)
  1. TYLENOL-500 [Concomitant]
     Dosage: 500 MG, UNK
     Route: 048
     Dates: start: 20050513, end: 20051011
  2. YASMIN [Suspect]
     Indication: MENORRHAGIA
     Dosage: UNK UNK, UNK
     Route: 048
     Dates: start: 20050501, end: 20050601
  3. KETOCONAZOLE [Concomitant]
     Dosage: UNK
     Dates: start: 20050405, end: 20050611

REACTIONS (1)
  - PULMONARY EMBOLISM [None]
